FAERS Safety Report 4972029-6 (Version None)
Quarter: 2006Q2

REPORT INFORMATION
  Report Type: 
  Country: None (occurrence: None)
  Receive Date: 20060413
  Receipt Date: 20060331
  Transmission Date: 20061013
  Serious: Yes (Other)
  Sender: FDA-Public Use
  Company Number: BR-ROCHE-442356

PATIENT
  Age: 63 Year
  Sex: Female

DRUGS (1)
  1. NAPROSYN [Suspect]
     Route: 048
     Dates: start: 20060320

REACTIONS (7)
  - ASTHMA [None]
  - CHEST INJURY [None]
  - DYSPEPSIA [None]
  - FALL [None]
  - FATIGUE [None]
  - HEADACHE [None]
  - TREMOR [None]
